FAERS Safety Report 14664729 (Version 3)
Quarter: 2018Q2

REPORT INFORMATION
  Report Type: Spontaneous
  Country: US (occurrence: US)
  Receive Date: 20180321
  Receipt Date: 20180529
  Transmission Date: 20180711
  Serious: Yes (Hospitalization)
  Sender: FDA-Public Use
  Company Number: US-ACTELION-A-NJ2018-169349

PATIENT
  Age: 14 Year
  Sex: Male

DRUGS (19)
  1. ZAVESCA [Suspect]
     Active Substance: MIGLUSTAT
     Dosage: 1 CAP IN THE MORNING/AFTERNOON AND 2 CAPS AT BEDTIME
     Route: 048
  2. MIRALAX [Concomitant]
     Active Substance: POLYETHYLENE GLYCOL 3350
     Dosage: 1 UNK, QD
     Route: 048
     Dates: start: 20140210
  3. PATANASE [Concomitant]
     Active Substance: OLOPATADINE HYDROCHLORIDE
     Dosage: 1 SPRAY, QD
     Route: 045
     Dates: start: 20140210
  4. LORAZEPAM. [Concomitant]
     Active Substance: LORAZEPAM
     Dosage: 1 ML, PRN
     Route: 048
     Dates: start: 20140210
  5. DIAZEPAM. [Concomitant]
     Active Substance: DIAZEPAM
     Dosage: 15 MG, PRN
     Route: 048
     Dates: start: 20140210
  6. FLUTICASONE. [Concomitant]
     Active Substance: FLUTICASONE
     Dosage: 2 SPRAYS, QD
     Route: 045
     Dates: start: 20140210
  7. ZAVESCA [Suspect]
     Active Substance: MIGLUSTAT
     Indication: LIPIDOSIS
     Dosage: 100 MG AM/ 200 MG PM
     Route: 048
     Dates: start: 20130304
  8. OXYGEN. [Concomitant]
     Active Substance: OXYGEN
     Dosage: 1 DOSE AS DIRECTED
     Route: 045
     Dates: start: 20140210
  9. VALPROIC ACID. [Concomitant]
     Active Substance: VALPROIC ACID
     Dosage: 5 ML, TID
     Route: 048
     Dates: start: 20140210
  10. PERIACTIN [Concomitant]
     Active Substance: CYPROHEPTADINE HYDROCHLORIDE
  11. CULTURELLE FOR KIDS [Concomitant]
     Dosage: UNK, QD
     Route: 048
     Dates: start: 20140210
  12. ZOMETA [Concomitant]
     Active Substance: ZOLEDRONIC ACID
     Dosage: 1 EVERY 6 MONTHS
     Route: 042
     Dates: start: 20161212
  13. ONFI [Concomitant]
     Active Substance: CLOBAZAM
     Dosage: 4 ML, TID
     Route: 048
     Dates: start: 20160215
  14. TRANSDERM SCOP [Concomitant]
     Active Substance: SCOPOLAMINE
     Dosage: 1 AS DIRECTED
     Route: 061
     Dates: start: 20140210
  15. RUFINAMIDE [Concomitant]
     Active Substance: RUFINAMIDE
  16. PROTRIPTYLINE [Concomitant]
     Active Substance: PROTRIPTYLINE
  17. REGLAN [Concomitant]
     Active Substance: METOCLOPRAMIDE HYDROCHLORIDE
     Dosage: 3.5 MG, TID
     Route: 048
     Dates: start: 20160113
  18. RISPERIDONE. [Concomitant]
     Active Substance: RISPERIDONE
     Dosage: 1 UNK, TID
     Route: 048
     Dates: start: 20140210
  19. CLONAZEPAM. [Concomitant]
     Active Substance: CLONAZEPAM
     Dosage: 1 UNK, BID, PRN
     Route: 048
     Dates: start: 20140210

REACTIONS (6)
  - Left ventricular hypertrophy [Unknown]
  - Rhinovirus infection [Unknown]
  - Cardiac disorder [Unknown]
  - Pyrexia [Unknown]
  - Urinary tract infection [Unknown]
  - Tachycardia [Unknown]

NARRATIVE: CASE EVENT DATE: 201802
